FAERS Safety Report 5710331-0 (Version None)
Quarter: 2008Q2

REPORT INFORMATION
  Report Type: 
  Country: None (occurrence: None)
  Receive Date: 20080418
  Receipt Date: 20080408
  Transmission Date: 20081010
  Serious: Yes (Hospitalization, Other)
  Sender: FDA-Public Use
  Company Number: GB-PFIZER INC-2008030833

PATIENT
  Age: 29 Year
  Sex: Female

DRUGS (4)
  1. METHYLPREDNISOLONE 16MG TAB [Suspect]
     Indication: LUPUS NEPHRITIS
  2. METHOTREXATE [Concomitant]
  3. CEFTRIAXONE [Concomitant]
  4. ACYCLOVIR [Concomitant]

REACTIONS (6)
  - BLINDNESS CORTICAL [None]
  - GRAND MAL CONVULSION [None]
  - HEADACHE [None]
  - HYPERTONIA [None]
  - PHOTOPHOBIA [None]
  - REVERSIBLE POSTERIOR LEUKOENCEPHALOPATHY SYNDROME [None]
